FAERS Safety Report 5382121-2 (Version None)
Quarter: 2007Q3

REPORT INFORMATION
  Report Type: 
  Country: None (occurrence: None)
  Receive Date: 20070709
  Receipt Date: 20070629
  Transmission Date: 20080115
  Serious: Yes (Other)
  Sender: FDA-Public Use
  Company Number: GB-PURDUE-GBR_2007_0003079

PATIENT
  Age: 29 Year
  Sex: Male

DRUGS (1)
  1. MST CONTINUS TABLETS [Suspect]
     Indication: MYALGIA
     Dosage: 2 GRAM, DAILY
     Route: 065

REACTIONS (3)
  - FEELING ABNORMAL [None]
  - GYNAECOMASTIA [None]
  - MYALGIA [None]
